FAERS Safety Report 5060527-9 (Version None)
Quarter: 2006Q3

REPORT INFORMATION
  Report Type: 
  Country: None (occurrence: None)
  Receive Date: 20060725
  Receipt Date: 20060718
  Transmission Date: 20061208
  Serious: Yes (Hospitalization)
  Sender: FDA-Public Use
  Company Number: US-JNJFOC-20060704280

PATIENT
  Sex: Male
  Weight: 103.87 kg

DRUGS (6)
  1. DURAGESIC-100 [Suspect]
     Indication: PAIN
  2. PERCOCET [Concomitant]
     Indication: PAIN
     Dosage: 325 MG ACETAMINOPHEN/10 MG OXYCODONE HYDROCHLORIDE
     Route: 048
  3. PROZAC [Concomitant]
     Route: 048
  4. CARDURA [Concomitant]
     Indication: HYPERTENSION
     Route: 048
  5. LUNESTA [Concomitant]
     Indication: SLEEP DISORDER
     Dosage: ONE PILL EVERY OTHER DAY (ALTERNATING WITH AMBIEN)
     Route: 048
  6. AMBIEN [Concomitant]
     Indication: SLEEP DISORDER
     Dosage: ONE PILL EVERY OTHER DAY (ALTERNATING WITH LUNESTA)

REACTIONS (2)
  - URETERAL NEOPLASM [None]
  - URETERAL SPASM [None]
